FAERS Safety Report 6027334-1 (Version None)
Quarter: 2009Q1

REPORT INFORMATION
  Report Type: 
  Country: None (occurrence: None)
  Receive Date: 20090105
  Receipt Date: 20081229
  Transmission Date: 20090719
  Serious: Yes (Hospitalization)
  Sender: FDA-Public Use
  Company Number: B0548443A

PATIENT
  Age: 14 Year
  Sex: Female

DRUGS (5)
  1. ALKERAN [Suspect]
     Indication: ALLOGENIC BONE MARROW TRANSPLANTATION THERAPY
     Dosage: 50MGM2 PER DAY
     Route: 042
     Dates: start: 20070923, end: 20070926
  2. FLUDARA [Suspect]
     Indication: ALLOGENIC BONE MARROW TRANSPLANTATION THERAPY
     Dosage: 42.5MGM2 PER DAY
     Route: 042
     Dates: start: 20070923, end: 20070926
  3. METHOTREXATE [Suspect]
     Indication: PROPHYLAXIS AGAINST GRAFT VERSUS HOST DISEASE
     Dates: start: 20070930, end: 20081005
  4. PROGRAF [Concomitant]
     Indication: PROPHYLAXIS AGAINST GRAFT VERSUS HOST DISEASE
     Dosage: .5MG PER DAY
     Route: 042
     Dates: start: 20070927
  5. ELASE [Concomitant]
     Indication: STOMATITIS
     Route: 061
     Dates: start: 20070923, end: 20070926

REACTIONS (4)
  - DIARRHOEA [None]
  - MUCOUS MEMBRANE DISORDER [None]
  - STOMATITIS [None]
  - VENOOCCLUSIVE LIVER DISEASE [None]
